FAERS Safety Report 26179229 (Version 1)
Quarter: 2025Q4

REPORT INFORMATION
  Report Type: Spontaneous
  Country: US (occurrence: None)
  Receive Date: 20251218
  Receipt Date: 20251218
  Transmission Date: 20260117
  Serious: No
  Sender: FDA-CTU
  Company Number: None

PATIENT
  Sex: Female

DRUGS (2)
  1. ICATIBANT ACETATE [Suspect]
     Active Substance: ICATIBANT ACETATE
     Indication: Angioedema
     Dosage: 30 MG AS NEEDED SUBCUTANEOUS
     Route: 058
  2. XOLAIR PFS [Concomitant]
     Active Substance: OMALIZUMAB

REACTIONS (1)
  - Gastrointestinal disorder [None]
